FAERS Safety Report 16399813 (Version 2)
Quarter: 2023Q2

REPORT INFORMATION
  Report Type: Spontaneous
  Country: US (occurrence: US)
  Receive Date: 20190606
  Receipt Date: 20230509
  Transmission Date: 20230722
  Serious: No
  Sender: FDA-Public Use
  Company Number: US-SA-2019SA153324

PATIENT
  Age: 47 Year
  Sex: Female
  Weight: 56.689 kg

DRUGS (1)
  1. DUPIXENT [Suspect]
     Active Substance: DUPILUMAB
     Indication: Dermatitis atopic
     Dosage: 300 MG, QOW
     Route: 058
     Dates: start: 20180501

REACTIONS (4)
  - Erythema [Not Recovered/Not Resolved]
  - Dermatitis atopic [Recovering/Resolving]
  - Dermatitis atopic [Unknown]
  - Drug ineffective [Unknown]
